FAERS Safety Report 18900891 (Version 1)
Quarter: 2021Q1

REPORT INFORMATION
  Report Type: Spontaneous
  Country: TR (occurrence: TR)
  Receive Date: 20210216
  Receipt Date: 20210216
  Transmission Date: 20210420
  Serious: Yes (Death, Other)
  Sender: FDA-Public Use
  Company Number: TR-ASTELLAS-2021US005263

PATIENT
  Age: 72 Year
  Sex: Male

DRUGS (5)
  1. XTANDI [Suspect]
     Active Substance: ENZALUTAMIDE
     Dosage: 120 MG (1X3 CAPSULES), ONCE DAILY
     Route: 048
     Dates: start: 201707, end: 201709
  2. DELTACORTRIL [Concomitant]
     Active Substance: PREDNISOLONE
     Indication: PRODUCT USED FOR UNKNOWN INDICATION
     Dosage: 10 MG (2X5 MG), UNKNOWN FREQ.
     Route: 065
  3. XTANDI [Suspect]
     Active Substance: ENZALUTAMIDE
     Dosage: 80 MG (1X2 CAPSULES), ONCE DAILY
     Route: 048
     Dates: start: 201711
  4. XTANDI [Suspect]
     Active Substance: ENZALUTAMIDE
     Indication: PRODUCT USED FOR UNKNOWN INDICATION
     Dosage: 160 MG (1X4 CAPSULES), ONCE DAILY
     Route: 048
     Dates: start: 201704, end: 201707
  5. XTANDI [Suspect]
     Active Substance: ENZALUTAMIDE
     Dosage: 160 MG (1X4 CAPSULES), ONCE DAILY
     Route: 048
     Dates: start: 201709, end: 201710

REACTIONS (7)
  - Quality of life decreased [Unknown]
  - Drug intolerance [Unknown]
  - Malignant neoplasm progression [Unknown]
  - Prostatic specific antigen increased [Unknown]
  - Asthenia [Unknown]
  - Death [Fatal]
  - Fatigue [Unknown]

NARRATIVE: CASE EVENT DATE: 201707
